FAERS Safety Report 4734280-X (Version None)
Quarter: 2005Q3

REPORT INFORMATION
  Report Type: 
  Country: None (occurrence: None)
  Receive Date: 20050729
  Receipt Date: 20050712
  Transmission Date: 20060218
  Serious: Yes (Death, Other)
  Sender: FDA-Public Use
  Company Number: USA0507103047

PATIENT
  Age: 35 Year
  Sex: Male

DRUGS (1)
  1. ZYPREXA [Suspect]
     Dosage: 20  MG

REACTIONS (3)
  - EPISTAXIS [None]
  - MYOCARDIAL INFARCTION [None]
  - WEIGHT INCREASED [None]
